FAERS Safety Report 8817589 (Version 1)
Quarter: 2012Q4

REPORT INFORMATION
  Report Type: 
  Country: FR (occurrence: FR)
  Receive Date: 20121001
  Receipt Date: 20121001
  Transmission Date: 20130627
  Serious: Yes (Other)
  Sender: FDA-Public Use
  Company Number: FR-GENZYME-200828719GPV

PATIENT
  Age: 40 Year
  Sex: Male
  Weight: 82 kg

DRUGS (6)
  1. CAMPATH [Suspect]
     Indication: CHRONIC LYMPHOCYTIC LEUKAEMIA
     Dosage: 30 mg, qd
     Route: 058
     Dates: start: 20080225, end: 20080517
  2. FLUDARA [Suspect]
     Indication: CHRONIC LYMPHOCYTIC LEUKAEMIA
     Dosage: 80 mg, qd
     Route: 048
     Dates: start: 20080225, end: 20080517
  3. ENDOXAN [Suspect]
     Indication: CHRONIC LYMPHOCYTIC LEUKAEMIA
     Dosage: 500 mg, qd
     Route: 048
     Dates: start: 20080225, end: 20080517
  4. VALACYCLOVIR [Concomitant]
     Indication: PRODUCT USED FOR UNKNOWN INDICATION
     Dosage: 1000 mg, qd
     Route: 048
     Dates: start: 200803
  5. BACTRIM [Concomitant]
     Indication: PRODUCT USED FOR UNKNOWN INDICATION
     Dosage: 800 mg, tid
     Route: 048
     Dates: start: 200803
  6. CALCIUM FOLINATE [Concomitant]
     Indication: PRODUCT USED FOR UNKNOWN INDICATION
     Dosage: 50 mg, tid
     Route: 065
     Dates: start: 200803

REACTIONS (2)
  - Richter^s syndrome [Recovered/Resolved]
  - Autoimmune thrombocytopenia [Unknown]
